FAERS Safety Report 17825397 (Version 1)
Quarter: 2020Q2

REPORT INFORMATION
  Report Type: Report from Study
  Country: CO (occurrence: CO)
  Receive Date: 20200526
  Receipt Date: 20200526
  Transmission Date: 20200714
  Serious: Yes (Death, Hospitalization)
  Sender: FDA-Public Use
  Company Number: NVSC2019CO091165

PATIENT
  Sex: Male

DRUGS (1)
  1. COSENTYX [Suspect]
     Active Substance: SECUKINUMAB
     Indication: PSORIASIS
     Dosage: 300 MG, QMO (2 OF 150 MG)
     Route: 058
     Dates: end: 20190126

REACTIONS (3)
  - Cardiac arrest [Fatal]
  - Spinal cord infection [Fatal]
  - Back pain [Unknown]

NARRATIVE: CASE EVENT DATE: 20190217
